FAERS Safety Report 16196190 (Version 2)
Quarter: 2019Q2

REPORT INFORMATION
  Report Type: Spontaneous
  Country: US (occurrence: US)
  Receive Date: 20190415
  Receipt Date: 20190610
  Transmission Date: 20190711
  Serious: Yes (Hospitalization, Other)
  Sender: FDA-Public Use
  Company Number: US-JAZZ-2019-US-005164

PATIENT

DRUGS (69)
  1. DEFITELIO [Suspect]
     Active Substance: DEFIBROTIDE SODIUM
     Indication: VENOOCCLUSIVE DISEASE
     Dosage: 6.25 MG/KG, Q6H, TOTAL 75 MG
     Route: 042
     Dates: start: 20140912, end: 20140913
  2. ACICLOVIR [Concomitant]
     Active Substance: ACYCLOVIR
     Indication: PROPHYLAXIS
     Dosage: UNK
     Dates: start: 20140826, end: 20140908
  3. CIPROFLOXACIN. [Concomitant]
     Active Substance: CIPROFLOXACIN
     Indication: GASTROINTESTINAL DISORDER
     Dosage: UNK
     Dates: start: 20140820, end: 20140827
  4. FILGRASTIM [Concomitant]
     Active Substance: FILGRASTIM
     Indication: GROWTH RETARDATION
     Dosage: UNK
     Dates: start: 20140831, end: 20140909
  5. MESNA. [Concomitant]
     Active Substance: MESNA
     Indication: PROPHYLACTIC CHEMOTHERAPY
     Dosage: UNK
     Dates: start: 20140822, end: 20140824
  6. MIDAZOLAM [Concomitant]
     Active Substance: MIDAZOLAM HYDROCHLORIDE
     Indication: SEDATION
     Dosage: UNK
     Dates: start: 20140913, end: 20140913
  7. MYCOPHENOLATE [Concomitant]
     Active Substance: MYCOPHENOLIC ACID
     Indication: PROPHYLAXIS AGAINST GRAFT VERSUS HOST DISEASE
     Dosage: UNK
     Dates: start: 20140912, end: 20140912
  8. RIFAXIMIN. [Concomitant]
     Active Substance: RIFAXIMIN
     Indication: HEPATIC ENCEPHALOPATHY
     Dosage: UNK
     Dates: start: 20140913, end: 20140921
  9. POTASSIUM CHLORIDE. [Concomitant]
     Active Substance: POTASSIUM CHLORIDE
     Indication: HYPOKALAEMIA
     Dosage: 7 MEQ
     Dates: start: 20140913, end: 20140913
  10. SPIRONOLACTONE. [Concomitant]
     Active Substance: SPIRONOLACTONE
     Indication: POLYURIA
     Dosage: 6.5 MG
     Dates: start: 20140912, end: 20140912
  11. VANCOMYCIN [Concomitant]
     Active Substance: VANCOMYCIN
     Indication: ANTIBIOTIC THERAPY
     Dosage: UNK
     Dates: start: 20140912, end: 20140913
  12. INSULIN [Concomitant]
     Active Substance: INSULIN NOS
     Indication: HYPERGLYCAEMIA
     Dosage: UNK
     Dates: start: 20140913, end: 20140919
  13. ALBUMIN [Concomitant]
     Active Substance: ALBUMIN HUMAN
     Indication: HYPOALBUMINAEMIA
     Dosage: UNK
     Dates: start: 20140914, end: 20140914
  14. BUSULFAN. [Concomitant]
     Active Substance: BUSULFAN
     Indication: BONE MARROW CONDITIONING REGIMEN
     Dosage: UNK
     Dates: start: 20140818, end: 20140821
  15. FUROSEMIDE. [Concomitant]
     Active Substance: FUROSEMIDE
     Dosage: 10 MG
     Dates: start: 20140909, end: 20140909
  16. METOCLOPRAMIDE. [Concomitant]
     Active Substance: METOCLOPRAMIDE
     Indication: NAUSEA
     Dosage: UNK
     Dates: start: 20140824, end: 20140827
  17. MORPHINE [Concomitant]
     Active Substance: MORPHINE
     Indication: PAIN
     Dosage: 1.2 MG
     Dates: start: 20140913, end: 20140913
  18. MORPHINE [Concomitant]
     Active Substance: MORPHINE
     Dosage: 1.3 MG
     Dates: start: 20140913, end: 20140913
  19. CHLOROTHIAZIDE. [Concomitant]
     Active Substance: CHLOROTHIAZIDE
     Indication: POLYURIA
     Dosage: UNK
     Dates: start: 20140910, end: 20140913
  20. FUROSEMIDE. [Concomitant]
     Active Substance: FUROSEMIDE
     Indication: POLYURIA
     Dosage: UNK
     Dates: start: 20140825, end: 20140825
  21. FUROSEMIDE. [Concomitant]
     Active Substance: FUROSEMIDE
     Dosage: 8 MG
     Dates: start: 20140910, end: 20140910
  22. FUROSEMIDE. [Concomitant]
     Active Substance: FUROSEMIDE
     Dosage: 13 MG
     Dates: start: 20140910, end: 20140913
  23. LACTULOSE. [Concomitant]
     Active Substance: LACTULOSE
     Indication: HEPATIC ENCEPHALOPATHY
     Dosage: UNK
     Dates: start: 20140913, end: 20140916
  24. MAGNESIUM SULFATE. [Concomitant]
     Active Substance: MAGNESIUM SULFATE
     Dosage: 630 MG
     Dates: start: 20140914, end: 20140914
  25. POTASSIUM CHLORIDE. [Concomitant]
     Active Substance: POTASSIUM CHLORIDE
     Dosage: 15 MEQ
     Dates: start: 20140914, end: 20140914
  26. FUROSEMIDE. [Concomitant]
     Active Substance: FUROSEMIDE
     Dosage: 12 MG
     Dates: start: 20140906, end: 20140906
  27. FUROSEMIDE. [Concomitant]
     Active Substance: FUROSEMIDE
     Dosage: 7 MG
     Dates: start: 20140910, end: 20140910
  28. METHYLPREDNISOLONE. [Concomitant]
     Active Substance: METHYLPREDNISOLONE
     Indication: VENOOCCLUSIVE DISEASE
     Dosage: UNK
     Dates: start: 20140911, end: 20140919
  29. PHYTONADIONE. [Concomitant]
     Active Substance: PHYTONADIONE
     Indication: COAGULOPATHY
     Dosage: UNK
     Dates: start: 20140910, end: 20140916
  30. ROCURONIUM [Concomitant]
     Active Substance: ROCURONIUM BROMIDE
     Indication: ENDOTRACHEAL INTUBATION
     Dosage: UNK
     Dates: start: 20140913, end: 20140913
  31. SPIRONOLACTONE. [Concomitant]
     Active Substance: SPIRONOLACTONE
     Dosage: 10 MG
     Dates: start: 20140923, end: 20140924
  32. DOPAMINE [Concomitant]
     Active Substance: DOPAMINE\DOPAMINE HYDROCHLORIDE
     Indication: POLYURIA
     Dosage: UNK
     Dates: start: 20140914, end: 20140915
  33. FENOLDOPAM [Concomitant]
     Active Substance: FENOLDOPAM
     Indication: POLYURIA
     Dosage: UNK
     Dates: start: 20140911, end: 20140918
  34. ACETAMINOPHEN. [Concomitant]
     Active Substance: ACETAMINOPHEN
     Dosage: 132 MG
     Dates: start: 20140911, end: 20140911
  35. CHLOROTHIAZIDE. [Concomitant]
     Active Substance: CHLOROTHIAZIDE
     Dosage: UNK
     Dates: start: 20140914, end: 20140919
  36. FENTANYL. [Concomitant]
     Active Substance: FENTANYL
     Indication: CHEST TUBE INSERTION
     Dosage: UNK
     Dates: start: 20140811, end: 20140811
  37. FUROSEMIDE. [Concomitant]
     Active Substance: FUROSEMIDE
     Dosage: 5 MG
     Dates: start: 20140909, end: 20140909
  38. FUROSEMIDE. [Concomitant]
     Active Substance: FUROSEMIDE
     Dosage: 13 MG
     Dates: start: 20140913, end: 20140919
  39. HEPARIN [Concomitant]
     Active Substance: HEPARIN SODIUM
     Indication: CATHETER MANAGEMENT
     Dosage: UNK
     Dates: start: 20140817, end: 20140821
  40. KETAMINE [Concomitant]
     Active Substance: KETAMINE
     Indication: CHEST TUBE INSERTION
     Dosage: UNK
     Dates: start: 20140911, end: 20140911
  41. LEVETIRACETAM. [Concomitant]
     Active Substance: LEVETIRACETAM
     Indication: SEIZURE PROPHYLAXIS
     Dosage: UNK
     Dates: start: 20140817, end: 20140822
  42. MAGNESIUM SULFATE. [Concomitant]
     Active Substance: MAGNESIUM SULFATE
     Indication: MINERAL SUPPLEMENTATION
     Dosage: UNK
     Dates: start: 20140812, end: 20140812
  43. ONDANSETRON [Concomitant]
     Active Substance: ONDANSETRON
     Indication: ANTIEMETIC SUPPORTIVE CARE
     Dosage: UNK
     Dates: start: 20140817, end: 20140909
  44. RANITIDINE. [Concomitant]
     Active Substance: RANITIDINE
     Indication: PROPHYLAXIS
     Dosage: UNK
     Dates: start: 20140824, end: 20140826
  45. TACROLIMUS. [Concomitant]
     Active Substance: TACROLIMUS
     Indication: PROPHYLAXIS AGAINST GRAFT VERSUS HOST DISEASE
     Dosage: UNK
     Dates: start: 20140822, end: 20140824
  46. ACETAMINOPHEN. [Concomitant]
     Active Substance: ACETAMINOPHEN
     Indication: PREMEDICATION
     Dosage: UNK
     Dates: start: 20140830, end: 20140830
  47. CYCLOPHOSPHAMIDE. [Concomitant]
     Active Substance: CYCLOPHOSPHAMIDE
     Indication: BONE MARROW CONDITIONING REGIMEN
     Dosage: UNK
     Dates: start: 20140822, end: 20140823
  48. FUROSEMIDE. [Concomitant]
     Active Substance: FUROSEMIDE
     Dosage: 6 MG
     Dates: start: 20140907, end: 20140907
  49. MAGNESIUM SULFATE. [Concomitant]
     Active Substance: MAGNESIUM SULFATE
     Dosage: 650 MG
     Dates: start: 20140914, end: 20140914
  50. MANNITOL. [Concomitant]
     Active Substance: MANNITOL
     Indication: BLOOD OSMOLARITY
     Dosage: UNK
     Dates: start: 20140913, end: 20140913
  51. POTASSIUM PHOSPHATE DIBASIC [Concomitant]
     Active Substance: POTASSIUM PHOSPHATE, DIBASIC
     Indication: HYPOKALAEMIA
     Dosage: UNK
     Dates: start: 20140912, end: 20140912
  52. SODIUM PHOSPHATE [Concomitant]
     Active Substance: SODIUM PHOSPHATE
     Indication: HYPOPHOSPHATAEMIA
     Dosage: UNK
     Dates: start: 20140912, end: 20140912
  53. URSODIOL. [Concomitant]
     Active Substance: URSODIOL
     Indication: PROPHYLAXIS
     Dosage: UNK
     Dates: start: 20140917, end: 20140918
  54. CEFEPIME [Concomitant]
     Active Substance: CEFEPIME HYDROCHLORIDE
     Indication: ANTIBIOTIC THERAPY
     Dosage: UNK
     Dates: start: 20140912, end: 20140921
  55. FUROSEMIDE. [Concomitant]
     Active Substance: FUROSEMIDE
     Dosage: 5 MG
     Dates: start: 20140908, end: 20140908
  56. FUROSEMIDE. [Concomitant]
     Active Substance: FUROSEMIDE
     Dosage: 12 MG
     Dates: start: 20140910, end: 20140910
  57. POLYETHYLENE GLYCOL 3350. [Concomitant]
     Active Substance: POLYETHYLENE GLYCOL 3350
     Indication: LAXATIVE SUPPORTIVE CARE
     Dosage: UNK
     Dates: start: 20140818, end: 20140820
  58. POTASSIUM CHLORIDE. [Concomitant]
     Active Substance: POTASSIUM CHLORIDE
     Dosage: 7 MEQ
     Dates: start: 20140913, end: 20140913
  59. PANTOPRAZOLE [Concomitant]
     Active Substance: PANTOPRAZOLE
     Indication: PROPHYLAXIS
     Dosage: UNK
     Dates: start: 20140909, end: 20141003
  60. AMINOPHYLLINE. [Concomitant]
     Active Substance: AMINOPHYLLINE
     Indication: POLYURIA
     Dosage: UNK
     Dates: start: 20140911, end: 20140911
  61. CIPROFLOXACIN. [Concomitant]
     Active Substance: CIPROFLOXACIN
     Dosage: UNK
     Dates: start: 20140827, end: 20140831
  62. DIPHENHYDRAMINE HYDROCHLORIDE. [Concomitant]
     Active Substance: DIPHENHYDRAMINE HYDROCHLORIDE
     Indication: PREMEDICATION
     Dosage: UNK
     Dates: start: 20140830, end: 20140830
  63. FLUCONAZOLE. [Concomitant]
     Active Substance: FLUCONAZOLE
     Indication: PROPHYLAXIS
     Dosage: UNK
     Dates: start: 20140818, end: 20140908
  64. FUROSEMIDE. [Concomitant]
     Active Substance: FUROSEMIDE
     Dosage: 12 MG
     Dates: start: 20140907, end: 20140907
  65. DEXTROSE. [Concomitant]
     Active Substance: DEXTROSE
     Indication: POLYURIA
     Dosage: UNK
     Dates: start: 20140911, end: 20140911
  66. METOCLOPRAMIDE. [Concomitant]
     Active Substance: METOCLOPRAMIDE
     Indication: VOMITING
  67. POTASSIUM PHOSPHATE DIBASIC [Concomitant]
     Active Substance: POTASSIUM PHOSPHATE, DIBASIC
     Indication: HYPOPHOSPHATAEMIA
  68. RASBURICASE [Concomitant]
     Active Substance: RASBURICASE
     Indication: HYPERURICAEMIA
     Dosage: UNK
     Dates: start: 20140911, end: 20140911
  69. MILRINONE [Concomitant]
     Active Substance: MILRINONE
     Indication: HAEMODYNAMIC INSTABILITY
     Dosage: UNK
     Dates: start: 20140914, end: 20140919

REACTIONS (1)
  - Pulmonary oedema [Recovered/Resolved]

NARRATIVE: CASE EVENT DATE: 20140913
